FAERS Safety Report 13054470 (Version 1)
Quarter: 2016Q4

REPORT INFORMATION
  Report Type: Spontaneous
  Country: BR (occurrence: BR)
  Receive Date: 20161222
  Receipt Date: 20161222
  Transmission Date: 20170207
  Serious: Yes (Hospitalization, Other)
  Sender: FDA-Public Use
  Company Number: BR-PFIZER INC-2016586042

PATIENT
  Age: 57 Year
  Sex: Male

DRUGS (1)
  1. SUTENT [Suspect]
     Active Substance: SUNITINIB MALATE
     Dosage: UNK
     Route: 048
     Dates: start: 20160705

REACTIONS (9)
  - Limb injury [Unknown]
  - Malaise [Recovering/Resolving]
  - Decreased appetite [Recovering/Resolving]
  - Pleural effusion [Unknown]
  - Abasia [Not Recovered/Not Resolved]
  - Weight decreased [Not Recovered/Not Resolved]
  - Fall [Unknown]
  - Neoplasm progression [Unknown]
  - Mouth injury [Unknown]

NARRATIVE: CASE EVENT DATE: 2016
